FAERS Safety Report 23622291 (Version 1)
Quarter: 2024Q1

REPORT INFORMATION
  Report Type: Spontaneous
  Country: US (occurrence: US)
  Receive Date: 20240312
  Receipt Date: 20240312
  Transmission Date: 20240410
  Serious: No
  Sender: FDA-Public Use
  Company Number: US-ALNYLAM PHARMACEUTICALS, INC.-ALN-2024-001355

PATIENT

DRUGS (2)
  1. GIVLAARI [Suspect]
     Active Substance: GIVOSIRAN SODIUM
     Indication: Porphyria acute
     Dosage: UNK
     Route: 065
  2. PANHEMATIN [Concomitant]
     Active Substance: HEMIN
     Indication: Porphyria
     Dosage: UNK
     Route: 065

REACTIONS (7)
  - Food intolerance [Unknown]
  - Vomiting [Unknown]
  - Retching [Unknown]
  - Gastrointestinal disorder [Unknown]
  - Adverse food reaction [Unknown]
  - Nausea [Not Recovered/Not Resolved]
  - Condition aggravated [Unknown]
